FAERS Safety Report 8559559-5 (Version None)
Quarter: 2012Q2

REPORT INFORMATION
  Report Type: 
  Country: None (occurrence: None)
  Receive Date: 20120418
  Receipt Date: 20090416
  Transmission Date: 20120825
  Serious: Yes (Other)
  Sender: FDA-Public Use
  Company Number: PHEH2006US04608

PATIENT
  Age: 76 Year
  Sex: Female

DRUGS (6)
  1. DIOVAN [Suspect]
     Indication: HYPERTENSION
     Dosage: 80 MG, QD, ORAL, 160 MG, ORAL
     Route: 048
     Dates: start: 20030603, end: 20070323
  2. DILTIAZEM [Concomitant]
  3. LEVOXYL [Concomitant]
  4. ASPIRIN [Concomitant]
  5. DIOVAN HCT [Concomitant]
  6. TOPROL-XL [Concomitant]

REACTIONS (5)
  - RASH [None]
  - DRY EYE [None]
  - ALOPECIA [None]
  - FATIGUE [None]
  - BLOOD PRESSURE INADEQUATELY CONTROLLED [None]
